FAERS Safety Report 5028343-1 (Version None)
Quarter: 2006Q2

REPORT INFORMATION
  Report Type: 
  Country: None (occurrence: None)
  Receive Date: 20060613
  Receipt Date: 20060530
  Transmission Date: 20061013
  Serious: Yes (Death)
  Sender: FDA-Public Use
  Company Number: 0510016

PATIENT
  Sex: Male
  Weight: 0.4536 kg

DRUGS (1)
  1. NITISINONE/ COMPASS.USE [Suspect]
     Indication: TYROSINAEMIA
     Dosage: MG/KG/DAY 0.5 ORAL
     Route: 048
     Dates: start: 20050823, end: 20050826

REACTIONS (3)
  - COMA [None]
  - HEPATOSPLENOMEGALY [None]
  - HYPERAMMONAEMIA [None]
